FAERS Safety Report 5584491-9 (Version None)
Quarter: 2008Q1

REPORT INFORMATION
  Report Type: 
  Country: None (occurrence: None)
  Receive Date: 20080103
  Receipt Date: 20071218
  Transmission Date: 20080703
  Serious: Yes (Hospitalization)
  Sender: FDA-Public Use
  Company Number: CERZ-11872

PATIENT
  Age: 67 Year
  Sex: Male

DRUGS (1)
  1. CEREZYME [Suspect]
     Indication: GAUCHER'S DISEASE
     Dosage: INTRAVENOUS
     Route: 042
     Dates: start: 20020828

REACTIONS (7)
  - CATHETER RELATED INFECTION [None]
  - DIALYSIS [None]
  - DIARRHOEA [None]
  - ENTEROBACTER INFECTION [None]
  - RENAL FAILURE ACUTE [None]
  - RESPIRATORY FAILURE [None]
  - SEPTIC SHOCK [None]
